FAERS Safety Report 9486960 (Version 1)
Quarter: 2013Q3

REPORT INFORMATION
  Report Type: Spontaneous
  Country: FR (occurrence: FR)
  Receive Date: 20130829
  Receipt Date: 20130829
  Transmission Date: 20140515
  Serious: Yes (Hospitalization)
  Sender: FDA-Public Use
  Company Number: FR-JNJFOC-20130808884

PATIENT
  Age: 86 Year
  Sex: 0
  Weight: 47 kg

DRUGS (8)
  1. XARELTO [Suspect]
     Indication: ARRHYTHMIA
     Route: 048
     Dates: start: 20130625, end: 20130726
  2. XARELTO [Suspect]
     Indication: ATRIAL FIBRILLATION
     Route: 048
     Dates: start: 20130625, end: 20130726
  3. XARELTO [Suspect]
     Indication: CEREBROVASCULAR ACCIDENT PROPHYLAXIS
     Route: 048
     Dates: start: 20130625, end: 20130726
  4. LEVOTHYROX [Concomitant]
     Route: 065
  5. HEMIGOXINE [Concomitant]
     Route: 065
  6. DIAMICRON [Concomitant]
     Route: 065
  7. FEMARA [Concomitant]
     Route: 065
  8. TAHOR [Concomitant]
     Route: 065

REACTIONS (4)
  - Arterial thrombosis [Unknown]
  - Aortic thrombosis [Unknown]
  - Atrial thrombosis [Unknown]
  - Drug ineffective [Unknown]
